FAERS Safety Report 7236215-7 (Version None)
Quarter: 2011Q1

REPORT INFORMATION
  Report Type: 
  Country: None (occurrence: None)
  Receive Date: 20110120
  Receipt Date: 20110119
  Transmission Date: 20110831
  Serious: Yes (Congenital Anomaly, Other)
  Sender: FDA-Public Use
  Company Number: US-PFIZER INC-2011013532

PATIENT

DRUGS (5)
  1. SERTRALINE HYDROCHLORIDE [Suspect]
     Dosage: 50 MG, UNK
  2. PRENATAL VITAMINS [Concomitant]
  3. SERTRALINE HYDROCHLORIDE [Suspect]
     Dosage: UNK MG, UNK
  4. AMBIEN [Concomitant]
     Indication: SLEEP DISORDER
  5. FOLIC ACID [Concomitant]

REACTIONS (2)
  - FALLOT'S TETRALOGY [None]
  - DRUG EXPOSURE DURING PREGNANCY [None]
